FAERS Safety Report 7952796-X (Version None)
Quarter: 2011Q4

REPORT INFORMATION
  Report Type: 
  Country: None (occurrence: None)
  Receive Date: 20111201
  Receipt Date: 20111123
  Transmission Date: 20120403
  Serious: Yes (Other)
  Sender: FDA-Public Use
  Company Number: BR-ABBOTT-11P-020-0866826-00

PATIENT
  Sex: Female
  Weight: 73 kg

DRUGS (2)
  1. HUMIRA [Suspect]
     Indication: RHEUMATOID ARTHRITIS
     Route: 058
     Dates: start: 20110415, end: 20110806
  2. PERINDOPRIL ERBUMINE [Concomitant]
     Indication: HYPERTENSION
     Route: 048

REACTIONS (1)
  - HIATUS HERNIA [None]
